FAERS Safety Report 5017565-1 (Version None)
Quarter: 2006Q2

REPORT INFORMATION
  Report Type: 
  Country: None (occurrence: None)
  Receive Date: 20060601
  Receipt Date: 20060601
  Transmission Date: 20061013
  Serious: No
  Sender: FDA-Public Use
  Company Number: None

PATIENT
  Age: 60 Year
  Sex: Male
  Weight: 108.2 kg

DRUGS (4)
  1. ASPIRIN [Suspect]
     Indication: ACUTE CORONARY SYNDROME
     Dosage: 325MG PO DAILY
     Route: 048
     Dates: start: 20060228
  2. CLOPIDOGREL [Suspect]
     Indication: ACUTE CORONARY SYNDROME
     Dosage: 75MG PO DAILY
     Route: 048
     Dates: start: 20060228
  3. ENOXAPARIN SODIUM [Suspect]
     Indication: ACUTE CORONARY SYNDROME
     Dosage: 100MG/ML SC BID
     Route: 058
     Dates: start: 20060228, end: 20060302
  4. EPTIFIBATIDE [Suspect]
     Indication: ACUTE CORONARY SYNDROME
     Dosage: 2MCG/KG/MIN
     Dates: start: 20060228, end: 20060302

REACTIONS (1)
  - HAEMOPTYSIS [None]
